FAERS Safety Report 12632901 (Version 2)
Quarter: 2016Q3

REPORT INFORMATION
  Report Type: Spontaneous
  Country: US (occurrence: US)
  Receive Date: 20160808
  Receipt Date: 20160808
  Transmission Date: 20161109
  Serious: No
  Sender: FDA-Public Use
  Company Number: US-BEH-2015057477

PATIENT
  Sex: Female
  Weight: 72 kg

DRUGS (16)
  1. DIPHENHYDRAMINE. [Concomitant]
     Active Substance: DIPHENHYDRAMINE
  2. PLAQUENIL [Concomitant]
     Active Substance: HYDROXYCHLOROQUINE SULFATE
  3. ACETAMINOPHEN. [Concomitant]
     Active Substance: ACETAMINOPHEN
  4. TRAMADOL. [Concomitant]
     Active Substance: TRAMADOL
  5. VITAMIN D [Concomitant]
     Active Substance: CHOLECALCIFEROL
  6. ALBUTEROL. [Concomitant]
     Active Substance: ALBUTEROL
  7. FISH OIL [Concomitant]
     Active Substance: FISH OIL
  8. EPIPEN [Concomitant]
     Active Substance: EPINEPHRINE
  9. MULTIVITAMINS, COMBINATIONS [Concomitant]
  10. HIZENTRA [Suspect]
     Active Substance: HUMAN IMMUNOGLOBULIN G
     Indication: HYPOGAMMAGLOBULINAEMIA
     Route: 058
  11. ADDERALL [Concomitant]
     Active Substance: AMPHETAMINE ASPARTATE\AMPHETAMINE SULFATE\DEXTROAMPHETAMINE SACCHARATE\DEXTROAMPHETAMINE SULFATE
  12. PROZAC [Concomitant]
     Active Substance: FLUOXETINE HYDROCHLORIDE
  13. VOLTAREN [Concomitant]
     Active Substance: DICLOFENAC SODIUM
  14. AMBIEN [Concomitant]
     Active Substance: ZOLPIDEM TARTRATE
  15. METHADONE [Concomitant]
     Active Substance: METHADONE HYDROCHLORIDE
  16. ABILIFY [Concomitant]
     Active Substance: ARIPIPRAZOLE

REACTIONS (1)
  - Upper respiratory tract infection [Unknown]
